FAERS Safety Report 4552158-1 (Version None)
Quarter: 2004Q4

REPORT INFORMATION
  Report Type: 
  Country: None (occurrence: None)
  Receive Date: 20041217
  Receipt Date: 20040823
  Transmission Date: 20050328
  Serious: No
  Sender: FDA-Public Use
  Company Number: 2004-BP-05955BP

PATIENT
  Age: 68 Year
  Sex: Female

DRUGS (4)
  1. SPIRIVA [Suspect]
     Indication: CHRONIC OBSTRUCTIVE AIRWAYS DISEASE
     Dosage: 18 MCG (18 MCG, 1 INH OD), IH
     Route: 055
     Dates: start: 20040601
  2. LIPITOR [Concomitant]
  3. HYDROCHLOROTHIAZIDE [Concomitant]
  4. LODINE [Concomitant]

REACTIONS (2)
  - COUGH [None]
  - HOARSENESS [None]
